FAERS Safety Report 13493374 (Version 2)
Quarter: 2018Q1

REPORT INFORMATION
  Report Type: Spontaneous
  Country: IT (occurrence: IT)
  Receive Date: 20170427
  Receipt Date: 20180305
  Transmission Date: 20180508
  Serious: Yes (Hospitalization)
  Sender: FDA-Public Use
  Company Number: IT-ROCHE-1925764

PATIENT
  Age: 42 Year
  Sex: Male

DRUGS (2)
  1. RIVOTRIL [Suspect]
     Active Substance: CLONAZEPAM
     Indication: PRODUCT USED FOR UNKNOWN INDICATION
     Route: 048
  2. SUBUTEX [Concomitant]
     Active Substance: BUPRENORPHINE HYDROCHLORIDE
     Dosage: ^8 MG SUBLINGUAL TABLETS^ 7 SUBLINGUAL TABLETS
     Route: 060

REACTIONS (3)
  - Drug abuse [Unknown]
  - Confusional state [Unknown]
  - Sopor [Unknown]

NARRATIVE: CASE EVENT DATE: 20170415
